FAERS Safety Report 7203093-1 (Version None)
Quarter: 2010Q4

REPORT INFORMATION
  Report Type: 
  Country: None (occurrence: None)
  Receive Date: 20101229
  Receipt Date: 20101221
  Transmission Date: 20110411
  Serious: Yes (Life-Threatening, Hospitalization)
  Sender: FDA-Public Use
  Company Number: US-CELGENEUS-163-50794-10122691

PATIENT
  Sex: Female
  Weight: 74.456 kg

DRUGS (36)
  1. VIDAZA [Suspect]
     Indication: T-CELL LYMPHOMA
     Route: 058
     Dates: start: 20101101, end: 20101218
  2. VELCADE [Suspect]
     Indication: T-CELL LYMPHOMA
     Route: 065
     Dates: start: 20101101, end: 20101209
  3. LANTUS [Concomitant]
     Route: 065
  4. DOXEPIN HCL [Concomitant]
     Route: 065
  5. LISINOPRIL [Concomitant]
     Route: 065
  6. SIMVASTATIN [Concomitant]
     Route: 065
  7. AMLODIPINE [Concomitant]
     Route: 065
  8. METFORMIN [Concomitant]
     Route: 065
  9. MAGNESIUM SULFATE [Concomitant]
     Dates: start: 20101201
  10. LEVOTHYROXINE [Concomitant]
     Route: 050
     Dates: start: 20101201
  11. DEXTROSE [Concomitant]
     Route: 050
     Dates: start: 20101201
  12. PETROLATUM [Concomitant]
     Route: 047
     Dates: start: 20101201
  13. SODIUM BICARBONATE [Concomitant]
     Route: 051
     Dates: start: 20101201
  14. ACETAMINOPHEN [Concomitant]
     Dosage: 325-650 MG
     Route: 065
     Dates: start: 20101201
  15. LINEZOLID [Concomitant]
     Dates: start: 20101201
  16. ESOMEPRAZOLE [Concomitant]
     Route: 050
     Dates: start: 20101201
  17. NOREPINEPHRINE BITARTRATE [Concomitant]
     Route: 051
     Dates: start: 20101201
  18. HYDROMORPHONE HCL [Concomitant]
     Dosage: 1-2 MG
     Route: 050
     Dates: start: 20101201
  19. LORAZEPAM [Concomitant]
     Dosage: 2-4 MG
     Route: 050
     Dates: start: 20101201
  20. CALCIUM GLUCONATE [Concomitant]
     Dates: start: 20101201
  21. POTASSIUM CHLORIDE [Concomitant]
     Dates: start: 20101201
  22. POTASSIUM CHLORIDE [Concomitant]
     Dates: start: 20101201
  23. POTASSIUM CHLORIDE [Concomitant]
     Route: 048
     Dates: start: 20101201
  24. POTASSIUM CHLORIDE [Concomitant]
     Route: 065
     Dates: start: 20101201
  25. POTASSIUM CHLORIDE [Concomitant]
     Route: 048
     Dates: start: 20101201
  26. DAPTOMYCIN [Concomitant]
     Dates: start: 20101201
  27. SODIUM PHOSPHATE [Concomitant]
     Dates: start: 20101201
  28. SODIUM PHOSPHATE [Concomitant]
     Dates: start: 20101201
  29. MAGNESIUM OXIDE [Concomitant]
     Route: 048
     Dates: start: 20101201
  30. FAMOTIDINE [Concomitant]
     Route: 050
     Dates: start: 20101201
  31. FAMOTIDINE [Concomitant]
     Route: 048
     Dates: start: 20101201
  32. HEPARIN [Concomitant]
     Route: 050
     Dates: start: 20101201
  33. ALBUTEROL [Concomitant]
     Dosage: 4 PUFFS
     Route: 055
     Dates: start: 20101201
  34. PNEUMOCOCCAL VACCINE [Concomitant]
     Route: 050
     Dates: start: 20101201
  35. INFLUENZA TRIVALENT-SPLIT VACCINE [Concomitant]
     Route: 050
     Dates: start: 20101201
  36. FLUCONAZOLE [Concomitant]
     Dates: start: 20101201

REACTIONS (4)
  - DIABETIC KETOACIDOSIS [None]
  - HYPERGLYCAEMIA [None]
  - LUNG INFECTION [None]
  - SEPSIS [None]
